FAERS Safety Report 20340455 (Version 1)
Quarter: 2022Q1

REPORT INFORMATION
  Report Type: Report from Study
  Country: VN (occurrence: VN)
  Receive Date: 20220117
  Receipt Date: 20220117
  Transmission Date: 20220423
  Serious: Yes (Other)
  Sender: FDA-Public Use
  Company Number: VN-NOVARTISPH-NVSC2022VN007626

PATIENT
  Age: 34 Year
  Sex: Male

DRUGS (1)
  1. METHOTREXATE [Suspect]
     Active Substance: METHOTREXATE
     Indication: Psoriasis
     Dosage: UNK
     Route: 048
     Dates: start: 199401, end: 199607

REACTIONS (5)
  - Psoriatic arthropathy [Recovering/Resolving]
  - Pain [Unknown]
  - Gait disturbance [Unknown]
  - Dysstasia [Unknown]
  - Arthritis [Not Recovered/Not Resolved]

NARRATIVE: CASE EVENT DATE: 20020901
